FAERS Safety Report 5590027-9 (Version None)
Quarter: 2008Q1

REPORT INFORMATION
  Report Type: 
  Country: None (occurrence: None)
  Receive Date: 20080114
  Receipt Date: 20070109
  Transmission Date: 20080703
  Serious: No
  Sender: FDA-Public Use
  Company Number: US-ABBOTT-07P-163-0355931-00

PATIENT
  Age: 3 Year
  Sex: Male

DRUGS (1)
  1. OMNICEF [Suspect]
     Indication: EAR INFECTION
     Route: 048

REACTIONS (5)
  - ANXIETY [None]
  - ARTHRALGIA [None]
  - PAIN IN EXTREMITY [None]
  - SERUM SICKNESS [None]
  - URTICARIA [None]
